FAERS Safety Report 24921136 (Version 1)
Quarter: 2025Q1

REPORT INFORMATION
  Report Type: Spontaneous
  Country: DE (occurrence: DE)
  Receive Date: 20250204
  Receipt Date: 20250204
  Transmission Date: 20250409
  Serious: No
  Sender: ALKEM
  Company Number: DE-ALKEM LABORATORIES LIMITED-DE-ALKEM-2024-24536

PATIENT
  Age: 32 Year
  Sex: Female

DRUGS (13)
  1. GABAPENTIN [Suspect]
     Active Substance: GABAPENTIN
     Indication: Product used for unknown indication
     Dosage: 300 MILLIGRAM, QD (EVERY 1 DAY)
     Route: 048
     Dates: start: 20240429, end: 20240530
  2. OCREVUS [Suspect]
     Active Substance: OCRELIZUMAB
     Indication: Relapsing multiple sclerosis
     Route: 042
     Dates: start: 20200928, end: 20201012
  3. OCREVUS [Suspect]
     Active Substance: OCRELIZUMAB
     Route: 042
     Dates: start: 20210422
  4. DIMETHINDENE MALEATE [Concomitant]
     Active Substance: DIMETHINDENE MALEATE
     Indication: Product used for unknown indication
     Route: 042
     Dates: start: 20200928, end: 20201012
  5. DIMETHINDENE MALEATE [Concomitant]
     Active Substance: DIMETHINDENE MALEATE
     Route: 042
     Dates: start: 20210422
  6. IBUPROFEN [Concomitant]
     Active Substance: IBUPROFEN
     Indication: Product used for unknown indication
     Route: 048
     Dates: start: 20220727, end: 20220730
  7. MAGNESIUM [Concomitant]
     Active Substance: MAGNESIUM
     Indication: Product used for unknown indication
     Dosage: 600 MILLIGRAM, QD (EVERY 1 DAY)
     Route: 048
     Dates: start: 20240201
  8. METHYPRED [Concomitant]
     Indication: Product used for unknown indication
     Route: 042
     Dates: start: 20200928, end: 20201012
  9. METHYPRED [Concomitant]
     Route: 042
     Dates: start: 20210422
  10. Pfizer-BioNTec Comirnaty [Concomitant]
     Indication: COVID-19 prophylaxis
     Dosage: 0.03 MILLIGRAM, QD (EVERY 1 DAY)
     Route: 030
     Dates: start: 20220220, end: 20220220
  11. PFIZER-BIONTECH COVID-19 VACCINE [Concomitant]
     Active Substance: TOZINAMERAN
     Indication: Product used for unknown indication
     Dosage: 30 MICROGRAM, QD (EVERY 1 DAY)
     Route: 030
     Dates: start: 20210821, end: 20210821
  12. PFIZER-BIONTECH COVID-19 VACCINE [Concomitant]
     Active Substance: TOZINAMERAN
     Dosage: 30 MICROGRAM, QD (EVERY 1 DAY)
     Route: 030
     Dates: start: 20210918, end: 20210918
  13. PREGABALIN [Concomitant]
     Active Substance: PREGABALIN
     Indication: Product used for unknown indication
     Dosage: 25 MILLIGRAM, BID (EVERY 0.5 DAY)
     Route: 048
     Dates: start: 20240725

REACTIONS (1)
  - Dizziness [Recovered/Resolved]

NARRATIVE: CASE EVENT DATE: 20240430
